FAERS Safety Report 4698653-6 (Version None)
Quarter: 2005Q2

REPORT INFORMATION
  Report Type: 
  Country: None (occurrence: None)
  Receive Date: 20050622
  Receipt Date: 29950610
  Transmission Date: 20051028
  Serious: Yes (Hospitalization, Other)
  Sender: FDA-Public Use
  Company Number: KII-2005-0017043

PATIENT
  Age: 50 Year
  Sex: Male

DRUGS (10)
  1. HYDROMORPHONE HCL [Suspect]
     Dosage: ORAL
     Route: 048
  2. METHADONE (METHADONE) [Suspect]
     Dosage: ORAL
     Route: 048
  3. BENZODIAZEPINE DERIVATIVES [Suspect]
     Dosage: ORAL
     Route: 048
  4. ACETAMINOPHEN AND OXYCODONE HCL [Suspect]
     Dosage: ORAL
     Route: 048
  5. COCAINE (COCAINE) [Suspect]
  6. GLIPIZIDE [Concomitant]
  7. METFORMIN HCL [Concomitant]
  8. ANTIHISTAMINE WITH CODEINE [Concomitant]
  9. SERUMLIPIDREDUCING AGENTS [Concomitant]
  10. OTHER HYPNOTICS AND SEDATIVES [Concomitant]

REACTIONS (8)
  - CONFUSIONAL STATE [None]
  - DEPRESSED LEVEL OF CONSCIOUSNESS [None]
  - HYPERTENSION [None]
  - MIOSIS [None]
  - PILOERECTION [None]
  - POLYSUBSTANCE ABUSE [None]
  - SKIN HAEMORRHAGE [None]
  - YAWNING [None]
